FAERS Safety Report 9125610 (Version 1)
Quarter: 2013Q1

REPORT INFORMATION
  Report Type: Spontaneous
  Country: US (occurrence: US)
  Receive Date: 20130227
  Receipt Date: 20130227
  Transmission Date: 20140127
  Serious: Yes (Other)
  Sender: FDA-Public Use
  Company Number: CHPA2013US003343

PATIENT
  Age: 60 Year
  Sex: Male

DRUGS (8)
  1. EXCEDRIN EXTRA STRENGTH [Suspect]
     Indication: BACK PAIN
     Dosage: 2 TO 4 DF, PRN
     Route: 048
  2. EXCEDRIN EXTRA STRENGTH [Suspect]
     Indication: ARTHRALGIA
  3. EXCEDRIN EXTRA STRENGTH [Suspect]
     Indication: HEADACHE
  4. EXCEDRIN EXTRA STRENGTH [Suspect]
     Indication: BACK PAIN
     Dosage: 2 TO 4 DF, PRN
     Route: 048
  5. EXCEDRIN EXTRA STRENGTH [Suspect]
     Indication: ARTHRALGIA
  6. EXCEDRIN EXTRA STRENGTH [Suspect]
     Indication: HEADACHE
  7. ULTRAM [Concomitant]
     Indication: BACK PAIN
     Dosage: UNK, PRN
  8. PLAVIX [Concomitant]
     Dosage: UNK, QD

REACTIONS (5)
  - Hypertension [Not Recovered/Not Resolved]
  - Venous occlusion [Unknown]
  - Insomnia [Not Recovered/Not Resolved]
  - Incorrect dose administered [Unknown]
  - Wrong technique in drug usage process [Unknown]
